FAERS Safety Report 7922017 (Version 2)
Quarter: 2013Q2

REPORT INFORMATION
  Report Type: Spontaneous
  Country: US (occurrence: US)
  Receive Date: 20110429
  Receipt Date: 20130517
  Transmission Date: 20140414
  Serious: No
  Sender: FDA-Public Use
  Company Number: US-ASTRAZENECA-2010SE58316

PATIENT
  Age: 80 Year
  Sex: Female
  Weight: 77.1 kg

DRUGS (6)
  1. TENORMIN [Suspect]
     Indication: BLOOD PRESSURE ABNORMAL
     Route: 048
  2. NEXIUM [Suspect]
     Indication: ULCER HAEMORRHAGE
     Route: 048
     Dates: start: 2010
  3. CRESTOR [Suspect]
     Route: 048
  4. SYNTHROID [Concomitant]
  5. ACTOS [Concomitant]
     Indication: DIABETES MELLITUS
  6. GLIMEPIRIDE [Concomitant]
     Indication: DIABETES MELLITUS

REACTIONS (9)
  - Abdominal distension [Unknown]
  - Weight increased [Unknown]
  - Irritable bowel syndrome [Unknown]
  - Pain in extremity [Unknown]
  - Myalgia [Unknown]
  - Arthralgia [Unknown]
  - Local swelling [Unknown]
  - Chest pain [Unknown]
  - Drug dose omission [Unknown]
